FAERS Safety Report 4728520-0 (Version None)
Quarter: 2005Q3

REPORT INFORMATION
  Report Type: 
  Country: None (occurrence: None)
  Receive Date: 20050727
  Receipt Date: 20050716
  Transmission Date: 20060218
  Serious: Yes (Other)
  Sender: FDA-Public Use
  Company Number: 2005046646

PATIENT
  Age: 67 Year
  Sex: Female
  Weight: 74.8435 kg

DRUGS (3)
  1. NARDIL [Suspect]
     Indication: PANIC ATTACK
     Dosage: 30 MG (15 MG, 2 IN 1 D), ORAL
     Route: 048
  2. MULTIVITAMIN [Concomitant]
  3. AMBIEN [Concomitant]

REACTIONS (8)
  - ANXIETY [None]
  - BACK INJURY [None]
  - BACK PAIN [None]
  - CONTRAINDICATION TO MEDICAL TREATMENT [None]
  - MUSCLE SPASMS [None]
  - PAIN IN EXTREMITY [None]
  - STRESS [None]
  - VARICOSE VEIN OPERATION [None]
